FAERS Safety Report 4830495-0 (Version None)
Quarter: 2005Q4

REPORT INFORMATION
  Report Type: 
  Country: None (occurrence: None)
  Receive Date: 20051114
  Receipt Date: 20051103
  Transmission Date: 20060501
  Serious: Yes (Hospitalization)
  Sender: FDA-Public Use
  Company Number: USA0511112797

PATIENT
  Age: 46 Year
  Sex: Female

DRUGS (3)
  1. CYMBALTA [Suspect]
     Indication: MAJOR DEPRESSION
     Dosage: 30 MG
     Dates: start: 20050902, end: 20050901
  2. PAXIL [Concomitant]
  3. WELLBUTRIN [Concomitant]

REACTIONS (2)
  - ANXIETY [None]
  - MENTAL DISORDER [None]
